FAERS Safety Report 6807704-1 (Version None)
Quarter: 2010Q2

REPORT INFORMATION
  Report Type: 
  Country: None (occurrence: None)
  Receive Date: 20100629
  Receipt Date: 20081107
  Transmission Date: 20101027
  Serious: No
  Sender: FDA-Public Use
  Company Number: US-PFIZER INC-2008081743

PATIENT
  Sex: Male

DRUGS (2)
  1. CARDURA [Suspect]
     Indication: BENIGN PROSTATIC HYPERPLASIA
     Route: 048
  2. CARDURA [Suspect]
     Indication: DYSURIA

REACTIONS (2)
  - DRUG INEFFECTIVE [None]
  - NOCTURIA [None]
